FAERS Safety Report 16269079 (Version 1)
Quarter: 2019Q2

REPORT INFORMATION
  Report Type: Spontaneous
  Country: FR (occurrence: FR)
  Receive Date: 20190503
  Receipt Date: 20190503
  Transmission Date: 20190711
  Serious: Yes (Hospitalization, Other)
  Sender: FDA-Public Use
  Company Number: FR-SA-2019SA119442

PATIENT
  Age: 35 Year
  Sex: Male

DRUGS (4)
  1. ISONIAZID. [Suspect]
     Active Substance: ISONIAZID
     Indication: TUBERCULOSIS
     Dosage: 150 MG, QD
     Route: 048
     Dates: start: 20190221
  2. PIRILENE [Suspect]
     Active Substance: PYRAZINAMIDE
     Indication: TUBERCULOSIS
     Dosage: 1500 MG, QD
     Route: 048
     Dates: start: 20190221
  3. PYRIDOXINE HYDROCHLORIDE. [Suspect]
     Active Substance: PYRIDOXINE HYDROCHLORIDE
     Indication: TUBERCULOSIS
     Dosage: 250 MG, QD
     Route: 048
     Dates: start: 20190221
  4. RIFADINE [Suspect]
     Active Substance: RIFAMPIN
     Indication: TUBERCULOSIS
     Dosage: 900 MG, QD
     Route: 048
     Dates: start: 20190221

REACTIONS (1)
  - Polychondritis [Not Recovered/Not Resolved]

NARRATIVE: CASE EVENT DATE: 20190317
